FAERS Safety Report 4377533-X (Version None)
Quarter: 2004Q2

REPORT INFORMATION
  Report Type: 
  Country: None (occurrence: None)
  Receive Date: 20040615
  Receipt Date: 20021014
  Transmission Date: 20050107
  Serious: Yes (Hospitalization, Disabling, Other)
  Sender: FDA-Public Use
  Company Number: US-MERCK-0210USA01484

PATIENT
  Age: 34 Year
  Sex: Female
  Weight: 84 kg

DRUGS (9)
  1. [COMPOSITION UNSPECIFIED] [Concomitant]
     Route: 065
  2. BAYCOL [Concomitant]
     Indication: BLOOD CHOLESTEROL INCREASED
     Route: 065
  3. ACTOS [Concomitant]
     Indication: DIABETES MELLITUS NON-INSULIN-DEPENDENT
     Route: 065
  4. VIOXX [Suspect]
     Indication: ARTHRALGIA
     Route: 048
     Dates: start: 20010101, end: 20010119
  5. VIOXX [Suspect]
     Route: 048
     Dates: start: 20000601, end: 20001101
  6. VIOXX [Suspect]
     Route: 048
     Dates: start: 20010128
  7. VIOXX [Suspect]
     Indication: PAIN
     Route: 048
     Dates: start: 20010101, end: 20010119
  8. VIOXX [Suspect]
     Route: 048
     Dates: start: 20000601, end: 20001101
  9. VIOXX [Suspect]
     Route: 048
     Dates: start: 20010128

REACTIONS (29)
  - ABDOMINAL PAIN UPPER [None]
  - BACK PAIN [None]
  - BLOOD IRON DECREASED [None]
  - BLOOD TRIGLYCERIDES INCREASED [None]
  - CHROMATURIA [None]
  - CHRONIC FATIGUE SYNDROME [None]
  - CONSTIPATION [None]
  - CONVULSION [None]
  - COSTOCHONDRITIS [None]
  - DEPRESSION [None]
  - DIABETES MELLITUS INADEQUATE CONTROL [None]
  - DIZZINESS [None]
  - DRUG HYPERSENSITIVITY [None]
  - DRUG INEFFECTIVE [None]
  - EMOTIONAL DISTRESS [None]
  - FATIGUE [None]
  - GENERAL PHYSICAL HEALTH DETERIORATION [None]
  - HYPERTENSION [None]
  - MACULAR OEDEMA [None]
  - MYALGIA [None]
  - NEURITIS [None]
  - NEUROPATHY PERIPHERAL [None]
  - OEDEMA PERIPHERAL [None]
  - PAIN [None]
  - PERIPHERAL VASCULAR DISORDER [None]
  - RESTLESS LEGS SYNDROME [None]
  - RETINOPATHY [None]
  - ROAD TRAFFIC ACCIDENT [None]
  - TACHYCARDIA [None]
